FAERS Safety Report 8546553-3 (Version None)
Quarter: 2012Q3

REPORT INFORMATION
  Report Type: 
  Country: None (occurrence: None)
  Receive Date: 20120727
  Receipt Date: 20120112
  Transmission Date: 20120928
  Serious: No
  Sender: FDA-Public Use
  Company Number: US-ASTRAZENECA-2011SE78110

PATIENT
  Age: 42 Year
  Sex: Female

DRUGS (2)
  1. SEROQUEL XR [Suspect]
     Indication: MOOD SWINGS
     Route: 048
  2. SEROQUEL XR [Suspect]
     Route: 048

REACTIONS (4)
  - ADVERSE DRUG REACTION [None]
  - SEDATION [None]
  - DRUG PRESCRIBING ERROR [None]
  - FEELING DRUNK [None]
